FAERS Safety Report 6571186-8 (Version None)
Quarter: 2010Q1

REPORT INFORMATION
  Report Type: 
  Country: None (occurrence: None)
  Receive Date: 20100204
  Receipt Date: 20100125
  Transmission Date: 20100710
  Serious: Yes (Hospitalization, Other)
  Sender: FDA-Public Use
  Company Number: US-MERCK-0907USA01970

PATIENT
  Age: 60 Year
  Sex: Female

DRUGS (4)
  1. FOSAMAX [Suspect]
     Indication: OSTEOPOROSIS
     Route: 048
     Dates: start: 20031001, end: 20070101
  2. FOSAMAX [Suspect]
     Route: 048
     Dates: start: 19980101, end: 20080901
  3. FOSAMAX PLUS D [Suspect]
     Indication: OSTEOPOROSIS
     Route: 048
     Dates: start: 20070201, end: 20080801
  4. ZOMETA [Suspect]
     Indication: BREAST CANCER
     Route: 042
     Dates: start: 20080301, end: 20080501

REACTIONS (18)
  - ANXIETY [None]
  - BURNING SENSATION [None]
  - DENTAL CARIES [None]
  - DYSGEUSIA [None]
  - EXOSTOSIS [None]
  - FISTULA [None]
  - HAEMORRHAGE [None]
  - IMPAIRED HEALING [None]
  - INSOMNIA [None]
  - LOCALISED INFECTION [None]
  - NEOPLASM MALIGNANT [None]
  - NERVOUSNESS [None]
  - OSTEOMYELITIS [None]
  - OSTEONECROSIS [None]
  - OSTEORADIONECROSIS [None]
  - PAIN [None]
  - PARAESTHESIA [None]
  - PERIODONTITIS [None]
